FAERS Safety Report 9751119 (Version 4)
Quarter: 2014Q1

REPORT INFORMATION
  Report Type: Spontaneous
  Country: US (occurrence: US)
  Receive Date: 20131212
  Receipt Date: 20140116
  Transmission Date: 20141002
  Serious: Yes (Death, Hospitalization, Other)
  Sender: FDA-Public Use
  Company Number: US-GILEAD-2013-0089892

PATIENT
  Age: 68 Year
  Sex: Female
  Weight: 73.92 kg

DRUGS (12)
  1. LETAIRIS [Suspect]
     Indication: PULMONARY HYPERTENSION
     Dosage: 10 MG, QD
     Route: 048
     Dates: start: 20130801, end: 20131112
  2. LETAIRIS [Suspect]
     Indication: PRODUCT USED FOR UNKNOWN INDICATION
     Dosage: 5 MG, UNK
     Route: 048
     Dates: start: 20130708
  3. IRON [Concomitant]
  4. ZOCOR [Concomitant]
  5. SYNTHROID [Concomitant]
  6. SLOW FE [Concomitant]
  7. PROTONIX [Concomitant]
  8. TENORMIN [Concomitant]
  9. LASIX                              /00032601/ [Concomitant]
  10. BABY ASPIRIN [Concomitant]
  11. K-DUR [Concomitant]
  12. OXYGEN [Concomitant]

REACTIONS (8)
  - Colitis ischaemic [Fatal]
  - Sepsis [Fatal]
  - Multi-organ failure [Fatal]
  - Alanine aminotransferase increased [Not Recovered/Not Resolved]
  - Aspartate aminotransferase increased [Not Recovered/Not Resolved]
  - Blood bilirubin increased [Not Recovered/Not Resolved]
  - Jaundice [Unknown]
  - Abdominal pain [Unknown]
